FAERS Safety Report 7905906-4 (Version None)
Quarter: 2011Q4

REPORT INFORMATION
  Report Type: 
  Country: None (occurrence: None)
  Receive Date: 20111110
  Receipt Date: 20111020
  Transmission Date: 20120403
  Serious: Yes (Other)
  Sender: FDA-Public Use
  Company Number: CA-JNJFOC-20111010739

PATIENT
  Sex: Female
  Weight: 56 kg

DRUGS (4)
  1. ALL OTHER THERAPEUTIC AGENTS [Concomitant]
  2. REMICADE [Suspect]
     Indication: ANKYLOSING SPONDYLITIS
     Route: 065
     Dates: start: 20090408, end: 20110907
  3. CELEBREX [Concomitant]
  4. NEXIUM [Concomitant]

REACTIONS (3)
  - MUSCLE SPASMS [None]
  - DYSPNOEA [None]
  - MUSCULOSKELETAL CHEST PAIN [None]
